FAERS Safety Report 8987784 (Version 1)
Quarter: 2012Q4

REPORT INFORMATION
  Report Type: 
  Country: US (occurrence: US)
  Receive Date: 20121227
  Receipt Date: 20121227
  Transmission Date: 20130627
  Serious: No
  Sender: FDA-Public Use
  Company Number: US-B.I. PHARMACEUTICALS,INC./RIDGEFIELD-2012-BI-03138BP

PATIENT
  Sex: Female
  Weight: 65 kg

DRUGS (4)
  1. COMBIVENT [Suspect]
     Indication: CHRONIC OBSTRUCTIVE PULMONARY DISEASE
  2. SPIRIVA [Suspect]
     Indication: EMPHYSEMA
     Dates: end: 20121204
  3. LEVOXYL [Concomitant]
     Indication: HYPOTHYROIDISM
     Route: 048
  4. ASPIRIN [Concomitant]
     Dosage: 81 mg
     Route: 048

REACTIONS (13)
  - Dyspnoea [Not Recovered/Not Resolved]
  - Drug ineffective [Not Recovered/Not Resolved]
  - Dyspepsia [Not Recovered/Not Resolved]
  - Chest discomfort [Not Recovered/Not Resolved]
  - Vision blurred [Recovered/Resolved]
  - Chest discomfort [Not Recovered/Not Resolved]
  - Urinary retention [Not Recovered/Not Resolved]
  - Insomnia [Recovered/Resolved]
  - Decreased appetite [Not Recovered/Not Resolved]
  - Abnormal loss of weight [Not Recovered/Not Resolved]
  - Food aversion [Not Recovered/Not Resolved]
  - Pruritus [Recovered/Resolved]
  - Dyspnoea [Not Recovered/Not Resolved]
